FAERS Safety Report 7606664-3 (Version None)
Quarter: 2011Q3

REPORT INFORMATION
  Report Type: 
  Country: None (occurrence: None)
  Receive Date: 20110713
  Receipt Date: 20110706
  Transmission Date: 20111222
  Serious: Yes (Other)
  Sender: FDA-Public Use
  Company Number: BR-ROCHE-729161

PATIENT
  Sex: Male

DRUGS (5)
  1. TOCILIZUMAB [Suspect]
     Dosage: RESTARTED: JUN/JUL 2011
     Route: 064
  2. TOCILIZUMAB [Suspect]
     Indication: RHEUMATOID ARTHRITIS
     Dosage: FORM: INFUSION
     Route: 064
     Dates: start: 20100611, end: 20100101
  3. PLAQUINOL [Concomitant]
  4. METICORTEN [Concomitant]
  5. SERTRALINE [Concomitant]

REACTIONS (1)
  - PREMATURE DELIVERY [None]
